FAERS Safety Report 24350020 (Version 1)
Quarter: 2024Q3

REPORT INFORMATION
  Report Type: Report from Study
  Country: RO (occurrence: RO)
  Receive Date: 20240923
  Receipt Date: 20240923
  Transmission Date: 20241016
  Serious: No
  Sender: ROCHE
  Company Number: RO-ROCHE-3497144

PATIENT
  Age: 66 Year
  Sex: Female
  Weight: 77.0 kg

DRUGS (1)
  1. HERCEPTIN [Suspect]
     Active Substance: TRASTUZUMAB
     Indication: Product used for unknown indication
     Dosage: INTRACUTANEOUSLY, 600 MG/5 ML
     Route: 065

REACTIONS (2)
  - Nausea [Unknown]
  - Off label use [Unknown]
